FAERS Safety Report 23493250 (Version 1)
Quarter: 2024Q1

REPORT INFORMATION
  Report Type: Spontaneous
  Country: US (occurrence: US)
  Receive Date: 20240207
  Receipt Date: 20240207
  Transmission Date: 20240409
  Serious: Yes (Hospitalization, Other)
  Sender: FDA-Public Use
  Company Number: US-APOTEX-2024AP001850

PATIENT
  Age: 33 Year
  Sex: Female

DRUGS (2)
  1. GEMCITABINE [Suspect]
     Active Substance: GEMCITABINE
     Indication: Cholangiocarcinoma
     Dosage: 1 DOSAGE FORM, Q.O.WK, TOTAL 2 DOSAGE FORM
     Route: 065
     Dates: start: 20210107, end: 20210121
  2. CISPLATIN [Suspect]
     Active Substance: CISPLATIN
     Indication: Cholangiocarcinoma
     Dosage: 1 DOSAGE FORM, Q.O.WK, TORAL 2 DOSAGE FORM RECEIVED
     Route: 065
     Dates: start: 20210107, end: 20210121

REACTIONS (7)
  - Escherichia urinary tract infection [Unknown]
  - Pneumonia [Unknown]
  - Staphylococcal bacteraemia [Unknown]
  - Staphylococcal infection [Unknown]
  - Bacterial infection [Unknown]
  - Hyperbilirubinaemia [Recovering/Resolving]
  - Liver function test increased [Unknown]

NARRATIVE: CASE EVENT DATE: 20210101
